FAERS Safety Report 20570833 (Version 1)
Quarter: 2022Q1

REPORT INFORMATION
  Report Type: Spontaneous
  Country: JP (occurrence: JP)
  Receive Date: 20220309
  Receipt Date: 20220309
  Transmission Date: 20220423
  Serious: Yes (Other)
  Sender: FDA-Public Use
  Company Number: JP-MACLEODS PHARMACEUTICALS US LTD-MAC2022034678

PATIENT

DRUGS (4)
  1. CLOBETASOL [Suspect]
     Active Substance: CLOBETASOL
     Indication: Scar
     Dosage: 275 GRAM, 1 TRIMESTER
     Route: 061
  2. CLOBETASOL [Suspect]
     Active Substance: CLOBETASOL
     Indication: Pruritus
     Dosage: 3.4 GRAM, QD
     Route: 061
  3. CLOBETASOL [Suspect]
     Active Substance: CLOBETASOL
     Dosage: 5.8 GRAM, QD
     Route: 061
  4. CLOBETASOL [Suspect]
     Active Substance: CLOBETASOL
     Dosage: 0.58 GRAM, QD
     Route: 061

REACTIONS (2)
  - Cushing^s syndrome [Recovered/Resolved]
  - Incorrect product administration duration [Recovered/Resolved]
